FAERS Safety Report 7562038-5 (Version None)
Quarter: 2011Q2

REPORT INFORMATION
  Report Type: 
  Country: None (occurrence: None)
  Receive Date: 20110622
  Receipt Date: 20090128
  Transmission Date: 20111010
  Serious: Yes (Death)
  Sender: FDA-Public Use
  Company Number: PHHY2009DE68662

PATIENT
  Sex: Female
  Weight: 66 kg

DRUGS (13)
  1. KALINOR RETARD [Concomitant]
  2. DIGIMERCK [Concomitant]
     Dosage: 0.07 UNK, QD
  3. MELPERONE [Concomitant]
     Dosage: 25 UNK, QD
  4. ANDOLOR [Concomitant]
  5. FUROSEMIDE [Concomitant]
     Dosage: 40 UNK, QD
  6. SANDOSTATIN LAR [Suspect]
     Dosage: 200 UNK, TID
     Route: 058
  7. PANTOPRAZOLE [Concomitant]
  8. METAMIZOLE [Concomitant]
  9. SEROQUEL [Concomitant]
     Dosage: 25 UNK, QD
  10. IBUPROFEN [Concomitant]
  11. METOPROLOL SUCCINATE [Concomitant]
     Dosage: 95 MG, DAILY
  12. SANDOSTATIN LAR [Suspect]
     Indication: PANCREATIC NEUROENDOCRINE TUMOUR
     Dosage: 30 MG, UNK
     Route: 030
     Dates: start: 20090130
  13. LORAZEPAM [Concomitant]
     Dosage: 1 UNK, QD

REACTIONS (2)
  - NEOPLASM MALIGNANT [None]
  - DIARRHOEA [None]
